FAERS Safety Report 8850498 (Version 1)
Quarter: 2012Q4

REPORT INFORMATION
  Report Type: 
  Country: DE (occurrence: DE)
  Receive Date: 20121019
  Receipt Date: 20121019
  Transmission Date: 20130627
  Serious: Yes (Hospitalization, Other)
  Sender: FDA-Public Use
  Company Number: DE-ROCHE-1144771

PATIENT
  Age: 62 Year
  Sex: Male

DRUGS (4)
  1. VEMURAFENIB [Suspect]
     Indication: METASTATIC MALIGNANT MELANOMA
     Route: 065
     Dates: start: 20120206
  2. HYDROMORPHONE [Concomitant]
     Indication: ANALGESIC THERAPY
  3. GABAPENTIN [Concomitant]
     Indication: ANALGESIC THERAPY
  4. ENOXAPARIN [Concomitant]
     Dosage: one dose
     Route: 065

REACTIONS (4)
  - Haematuria [Unknown]
  - Vessel puncture site haemorrhage [Unknown]
  - Haematoma [Unknown]
  - Disseminated intravascular coagulation [Unknown]
